FAERS Safety Report 16132076 (Version 1)
Quarter: 2019Q1

REPORT INFORMATION
  Report Type: Spontaneous
  Country: CN (occurrence: CN)
  Receive Date: 20190329
  Receipt Date: 20190329
  Transmission Date: 20190418
  Serious: Yes (Other)
  Sender: FDA-Public Use
  Company Number: CN-BAXTER-2019BAX006205

PATIENT
  Age: 24 Year
  Sex: Female
  Weight: 51 kg

DRUGS (12)
  1. ENDOXAN [Suspect]
     Active Substance: CYCLOPHOSPHAMIDE
     Indication: BREAST CANCER FEMALE
     Dosage: DOSAGE FORM: INJECTION, CYCLOPHOSPHAMIDE FOR INJECTION (ENDOXAN CTX) + NORMAL SALINE, CHEMOTHERAPY F
     Route: 042
  2. ENDOXAN [Suspect]
     Active Substance: CYCLOPHOSPHAMIDE
     Dosage: DOSAGE FORM: INJECTION, CYCLOPHOSPHAMIDE FOR INJECTION (ENDOXAN CTX) + NORMAL SALINE, DOSE RE-INTROD
     Route: 042
  3. 0.9% SODIUM CHLORIDE INJECTION [Suspect]
     Active Substance: SODIUM CHLORIDE
     Dosage: CYCLOPHOSPHAMIDE FOR INJECTION (ENDOXAN CTX) 950 MG + NORMAL SALINE 50 ML, CHEMOTHERAPY FOR THE SECO
     Route: 042
     Dates: start: 20190218, end: 20190218
  4. 0.9% SODIUM CHLORIDE INJECTION [Suspect]
     Active Substance: SODIUM CHLORIDE
     Dosage: DOCETAXEL INJECTION (TAXOTERE) 120 MG + NORMAL SALINE 250 ML, CHEMOTHERAPY FOR THE SECOND TIME
     Route: 041
     Dates: start: 20190218, end: 20190218
  5. TAXOTERE [Suspect]
     Active Substance: DOCETAXEL
     Indication: BREAST CANCER FEMALE
     Dosage: DOCETAXEL INJECTION (TAXOTERE) + NORMAL SALINE, CHEMOTHERAPY FOR THE FIRST TIME
     Route: 041
  6. 0.9% SODIUM CHLORIDE INJECTION [Suspect]
     Active Substance: SODIUM CHLORIDE
     Dosage: DOCETAXEL INJECTION (TAXOTERE) + NORMAL SALINE, CHEMOTHERAPY FOR THE FIRST TIME
     Route: 041
  7. 0.9% SODIUM CHLORIDE INJECTION [Suspect]
     Active Substance: SODIUM CHLORIDE
     Dosage: CYCLOPHOSPHAMIDE FOR INJECTION (ENDOXAN CTX) + NORMAL SALINE, DOSE RE-INTRODUCED
     Route: 042
  8. ENDOXAN [Suspect]
     Active Substance: CYCLOPHOSPHAMIDE
     Dosage: DOSAGE FORM: INJECTION, CYCLOPHOSPHAMIDE FOR INJECTION (ENDOXAN CTX) 950 MG + NORMAL SALINE 50 ML, C
     Route: 042
     Dates: start: 20190218, end: 20190218
  9. 0.9% SODIUM CHLORIDE INJECTION [Suspect]
     Active Substance: SODIUM CHLORIDE
     Dosage: DOCETAXEL INJECTION (TAXOTERE) + NORMAL SALINE, DOSE RE-INTRODUCED
     Route: 041
  10. 0.9% SODIUM CHLORIDE INJECTION [Suspect]
     Active Substance: SODIUM CHLORIDE
     Indication: MEDICATION DILUTION
     Dosage: CYCLOPHOSPHAMIDE FOR INJECTION (ENDOXAN CTX) + NORMAL SALINE, CHEMOTHERAPY FOR THE FIRST TIME
     Route: 042
  11. TAXOTERE [Suspect]
     Active Substance: DOCETAXEL
     Dosage: DOCETAXEL INJECTION (TAXOTERE) 120 MG + NORMAL SALINE 250 ML, CHEMOTHERAPY FOR THE SECOND TIME
     Route: 041
     Dates: start: 20190218, end: 20190218
  12. TAXOTERE [Suspect]
     Active Substance: DOCETAXEL
     Dosage: DOCETAXEL INJECTION (TAXOTERE) + NORMAL SALINE, DOSE RE-INTRODUCED
     Route: 041

REACTIONS (1)
  - Granulocytopenia [Recovered/Resolved]

NARRATIVE: CASE EVENT DATE: 20190225
